FAERS Safety Report 5353278-4 (Version None)
Quarter: 2007Q2

REPORT INFORMATION
  Report Type: 
  Country: None (occurrence: None)
  Receive Date: 20070518
  Receipt Date: 20070308
  Transmission Date: 20071010
  Serious: No
  Sender: FDA-Public Use
  Company Number: TPA2007A00345

PATIENT
  Age: 67 Year
  Sex: Female

DRUGS (2)
  1. ROZEREM [Suspect]
     Dosage: ONCE, PER ORAL
     Route: 048
  2. ALANSOPINE (ALL OTHER THERAPEUTIC PRODUCTS) (UNKNOWN) [Concomitant]

REACTIONS (2)
  - DYSKINESIA [None]
  - TARDIVE DYSKINESIA [None]
